FAERS Safety Report 21731591 (Version 2)
Quarter: 2023Q2

REPORT INFORMATION
  Report Type: Spontaneous
  Country: US (occurrence: US)
  Receive Date: 20221215
  Receipt Date: 20230419
  Transmission Date: 20230722
  Serious: No
  Sender: FDA-Public Use
  Company Number: US-BRISTOL-MYERS SQUIBB COMPANY-2022-152940

PATIENT
  Age: 82 Year
  Sex: Female
  Weight: 68.95 kg

DRUGS (2)
  1. REVLIMID [Suspect]
     Active Substance: LENALIDOMIDE
     Indication: Plasma cell myeloma
     Route: 048
  2. REVLIMID [Suspect]
     Active Substance: LENALIDOMIDE
     Dosage: 3W ON 1W OFF
     Route: 048

REACTIONS (5)
  - Urinary tract infection [Unknown]
  - Bronchitis [Unknown]
  - Anxiety [Unknown]
  - Platelet count decreased [Unknown]
  - Platelet count increased [Unknown]
